FAERS Safety Report 18763694 (Version 1)
Quarter: 2021Q1

REPORT INFORMATION
  Report Type: Spontaneous
  Country: US (occurrence: US)
  Receive Date: 20210120
  Receipt Date: 20210120
  Transmission Date: 20210419
  Serious: No
  Sender: FDA-Public Use
  Company Number: US-ELI_LILLY_AND_COMPANY-US202101007579

PATIENT
  Age: 70 Year
  Sex: Female

DRUGS (1)
  1. LYUMJEV KWIKPEN [Suspect]
     Active Substance: INSULIN LISPRO
     Indication: PRODUCT USED FOR UNKNOWN INDICATION
     Dosage: UNK, UNKNOWN
     Route: 058
     Dates: start: 20210112

REACTIONS (4)
  - Urticaria [Recovering/Resolving]
  - Rash macular [Recovering/Resolving]
  - Drug hypersensitivity [Unknown]
  - Pruritus [Recovering/Resolving]

NARRATIVE: CASE EVENT DATE: 20210114
